FAERS Safety Report 8625626-0 (Version None)
Quarter: 2012Q3

REPORT INFORMATION
  Report Type: 
  Country: None (occurrence: None)
  Receive Date: 20120827
  Receipt Date: 20120821
  Transmission Date: 20120928
  Serious: No
  Sender: FDA-Public Use
  Company Number: US-B.I. PHARMACEUTICALS,INC./RIDGEFIELD-2012-BP-20390BP

PATIENT
  Sex: Male

DRUGS (9)
  1. SPIRIVA [Suspect]
     Indication: EMPHYSEMA
     Dosage: 18 MCG
     Route: 055
  2. ASPIRIN [Concomitant]
     Dosage: 81 MG
     Route: 048
  3. PROVENTIL [Concomitant]
  4. FINASTERIDE [Concomitant]
     Indication: PROSTATOMEGALY
     Route: 048
  5. FISH OIL [Concomitant]
     Route: 048
  6. PALMETTO [Concomitant]
     Indication: PROSTATOMEGALY
     Route: 048
  7. ALBUTEROL [Concomitant]
     Indication: EMPHYSEMA
     Route: 048
  8. THEOPHYLLINE [Concomitant]
     Indication: EMPHYSEMA
     Dosage: 300 MG
     Route: 048
  9. DOXAZOSIN MESYLATE [Concomitant]
     Indication: PROSTATOMEGALY
     Route: 048

REACTIONS (1)
  - DYSPNOEA [None]
